FAERS Safety Report 9238364 (Version 1)
Quarter: 2013Q1

REPORT INFORMATION
  Report Type: Spontaneous
  Country: US (occurrence: None)
  Receive Date: 20121106
  Receipt Date: 20121106
  Transmission Date: 20140127
  Serious: No
  Sender: FDA-Public Use
  Company Number: 1000037472

PATIENT
  Age: 49 Year
  Sex: Female

DRUGS (11)
  1. DALIRESP [Suspect]
     Indication: CHRONIC OBSTRUCTIVE PULMONARY DISEASE
     Dosage: 500 MCG, 1 IN 1
     Dates: start: 20120720, end: 20120720
  2. AVALOX (MOXIFLOXACIN HYDROCHLORIDE) [Concomitant]
  3. VITAMIN D [Concomitant]
  4. SYNTHROID (LEVOTHYROXINE SODIUM) [Concomitant]
  5. PRILOSEC [Concomitant]
  6. POTASSIUM [Concomitant]
  7. HYDROCHLOROTHIAZIDE [Concomitant]
  8. LASIX (FUROSEMIDE) [Concomitant]
  9. DIOVAN (VALSARTAN) [Concomitant]
  10. SPIRONOLACTONE [Concomitant]
  11. FLONASE (FLUTICASONE PROPIONATE) [Concomitant]

REACTIONS (1)
  - Hypersensitivity [None]
